APPROVED DRUG PRODUCT: METHYLPREDNISOLONE
Active Ingredient: METHYLPREDNISOLONE
Strength: 32MG
Dosage Form/Route: TABLET;ORAL
Application: A207481 | Product #004
Applicant: AMNEAL EU LTD
Approved: Sep 21, 2021 | RLD: No | RS: No | Type: DISCN